FAERS Safety Report 7884797-4 (Version None)
Quarter: 2011Q4

REPORT INFORMATION
  Report Type: 
  Country: None (occurrence: None)
  Receive Date: 20111102
  Receipt Date: 20111026
  Transmission Date: 20120403
  Serious: Yes (Other)
  Sender: FDA-Public Use
  Company Number: PHHY2011KR95603

PATIENT
  Age: 60 Year
  Sex: Male

DRUGS (7)
  1. ALPRAZOLAM [Concomitant]
     Indication: DEPRESSION
     Dosage: 0.25 MG, BID
  2. BUPROPION HCL [Suspect]
  3. ESCITALOPRAM [Concomitant]
     Indication: DEPRESSION
     Dosage: 10 MG, UNK
  4. SIMVASTATIN [Concomitant]
  5. TEMISARTAN [Concomitant]
  6. ASPIRIN [Concomitant]
  7. CLOPIDOGREL [Concomitant]

REACTIONS (7)
  - FATIGUE [None]
  - ANXIETY [None]
  - INSOMNIA [None]
  - ADRENAL INSUFFICIENCY [None]
  - HYPONATRAEMIA [None]
  - ASTHENIA [None]
  - BLOOD CHLORIDE DECREASED [None]
